FAERS Safety Report 7635818-5 (Version None)
Quarter: 2011Q3

REPORT INFORMATION
  Report Type: 
  Country: None (occurrence: None)
  Receive Date: 20110719
  Receipt Date: 20110704
  Transmission Date: 20111222
  Serious: Yes (Hospitalization)
  Sender: FDA-Public Use
  Company Number: 2011AP001389

PATIENT
  Sex: Female

DRUGS (13)
  1. CALCIUM CARBONATE [Concomitant]
  2. MYCOPHENOLATE MOFETIL [Suspect]
     Indication: WEGENER'S GRANULOMATOSIS
     Dosage: 1 G;   ;TID
     Dates: start: 20090101
  3. WARFARIN SODIUM [Concomitant]
  4. DAPSONE [Concomitant]
  5. CANDESARTAN CILEXETIL [Concomitant]
  6. ENALAPRIL MALEATE [Concomitant]
  7. ONDANSETRON [Concomitant]
  8. DOXYCYCLINE [Concomitant]
  9. FOLIC ACID [Concomitant]
  10. METHOTREXATE [Concomitant]
  11. SODIUM BICARBONATE IN PLASTIC CONTAINER [Concomitant]
  12. OMEPRAZOLE [Concomitant]
  13. PREDNISOLONE [Concomitant]

REACTIONS (1)
  - WEGENER'S GRANULOMATOSIS [None]
